FAERS Safety Report 19931823 (Version 9)
Quarter: 2021Q4

REPORT INFORMATION
  Report Type: Report from Study
  Country: BR (occurrence: BR)
  Receive Date: 20211007
  Receipt Date: 20211221
  Transmission Date: 20220303
  Serious: Yes (Death, Life-Threatening, Hospitalization, Disabling, Other)
  Sender: FDA-Public Use
  Company Number: BR-GILEAD-2021-0551389

PATIENT
  Age: 81 Year
  Sex: Male
  Weight: 85 kg

DRUGS (14)
  1. REMDESIVIR [Suspect]
     Active Substance: REMDESIVIR
     Indication: COVID-19
     Dosage: 200 MG, ONCE
     Route: 042
     Dates: start: 20210927, end: 20210927
  2. REMDESIVIR [Suspect]
     Active Substance: REMDESIVIR
     Dosage: 100 MG, QD
     Route: 042
     Dates: start: 20210928, end: 20210930
  3. INFLIXIMAB [Suspect]
     Active Substance: INFLIXIMAB
     Indication: COVID-19
     Dosage: 400 MG, ONCE
     Route: 042
     Dates: start: 20210927, end: 20210927
  4. PLACEBO [Suspect]
     Active Substance: UNSPECIFIED INGREDIENT
     Indication: COVID-19
     Dosage: 400 MG, ONCE
     Route: 042
     Dates: start: 20210927, end: 20210927
  5. PIPERACILLIN SODIUM [Concomitant]
     Active Substance: PIPERACILLIN SODIUM
     Indication: Bacterial infection
     Dosage: UNK, QD
     Route: 048
     Dates: start: 20210930
  6. TAZOBACTAM [Concomitant]
     Active Substance: TAZOBACTAM
     Indication: Bacterial infection
     Dosage: UNK, QD
     Route: 048
     Dates: start: 20210930
  7. ENOXAPARIN [Concomitant]
     Active Substance: ENOXAPARIN
     Indication: Prophylaxis
     Dosage: 20 MG, BID
     Route: 058
     Dates: start: 20210902
  8. ENALAPRIL [Concomitant]
     Active Substance: ENALAPRIL
  9. ESOMEPRAZOLE [Concomitant]
     Active Substance: ESOMEPRAZOLE
  10. HYDROCHLOROTHIAZIDE [Concomitant]
     Active Substance: HYDROCHLOROTHIAZIDE
  11. METAMIZOLE SODIUM [Concomitant]
     Active Substance: METAMIZOLE SODIUM
  12. METHYLPREDNISOLONE [Concomitant]
     Active Substance: METHYLPREDNISOLONE
  13. PRECEDEX [Concomitant]
     Active Substance: DEXMEDETOMIDINE HYDROCHLORIDE
  14. COVID-19 VACCINE INACT (VERO) CZ02 [Concomitant]

REACTIONS (4)
  - Acute kidney injury [Not Recovered/Not Resolved]
  - Acute respiratory failure [Not Recovered/Not Resolved]
  - Tracheobronchitis [Fatal]
  - Deep vein thrombosis [Not Recovered/Not Resolved]

NARRATIVE: CASE EVENT DATE: 20210930
